FAERS Safety Report 7071561-1 (Version None)
Quarter: 2010Q4

REPORT INFORMATION
  Report Type: 
  Country: None (occurrence: None)
  Receive Date: 20101029
  Receipt Date: 20090923
  Transmission Date: 20110411
  Serious: No
  Sender: FDA-Public Use
  Company Number: A0808675A

PATIENT
  Sex: Female

DRUGS (7)
  1. ADVAIR DISKUS 100/50 [Suspect]
     Indication: ASTHMA
     Dosage: 1PUFF TWICE PER DAY
     Route: 055
  2. PREDNISONE [Concomitant]
     Indication: ASTHMA
  3. PRILOSEC [Concomitant]
  4. LORAZEPAM [Concomitant]
  5. EFFEXOR XR [Concomitant]
  6. RECLAST [Concomitant]
  7. HYDROCODONE [Concomitant]

REACTIONS (1)
  - CANDIDIASIS [None]
